FAERS Safety Report 25115546 (Version 3)
Quarter: 2025Q2

REPORT INFORMATION
  Report Type: Spontaneous
  Country: BR (occurrence: BR)
  Receive Date: 20250324
  Receipt Date: 20250415
  Transmission Date: 20250717
  Serious: Yes (Hospitalization, Other)
  Sender: SANOFI AVENTIS
  Company Number: BR-SA-2025SA083109

PATIENT
  Age: 52 Year
  Sex: Male
  Weight: 72 kg

DRUGS (3)
  1. CAPRELSA [Suspect]
     Active Substance: VANDETANIB
     Indication: Medullary thyroid cancer
     Dosage: 1 DF, QD
     Route: 065
     Dates: start: 202410, end: 202501
  2. PREGABALIN [Concomitant]
     Active Substance: PREGABALIN
     Indication: Depression
  3. CABOMETYX [Concomitant]
     Active Substance: CABOZANTINIB S-MALATE
     Indication: Product used for unknown indication

REACTIONS (12)
  - Confusional state [Recovering/Resolving]
  - Abdominal pain [Recovering/Resolving]
  - Medullary thyroid cancer [Unknown]
  - Condition aggravated [Unknown]
  - Weight increased [Unknown]
  - Ammonia abnormal [Unknown]
  - Liver disorder [Unknown]
  - Dyspepsia [Unknown]
  - Nodule [Unknown]
  - Somnolence [Unknown]
  - Weight decreased [Unknown]
  - Asthenia [Unknown]

NARRATIVE: CASE EVENT DATE: 20250101
